FAERS Safety Report 9331684 (Version 3)
Quarter: 2014Q1

REPORT INFORMATION
  Report Type: Spontaneous
  Country: US (occurrence: US)
  Receive Date: 20130605
  Receipt Date: 20140103
  Transmission Date: 20141002
  Serious: Yes (Hospitalization, Disabling, Other)
  Sender: FDA-Public Use
  Company Number: US-009507513-1305USA017811

PATIENT
  Sex: Female

DRUGS (3)
  1. FOSAMAX [Suspect]
     Indication: OSTEOPOROSIS PROPHYLAXIS
     Dosage: 70 MG, UNK
     Route: 048
     Dates: start: 2006, end: 200802
  2. FOSAMAX PLUS D [Suspect]
     Indication: OSTEOPOROSIS PROPHYLAXIS
     Dosage: 70 MG, UNK
     Route: 048
     Dates: start: 20080227, end: 20110806
  3. PRILOSEC [Concomitant]
     Dosage: UNK
     Dates: start: 1990

REACTIONS (9)
  - Intramedullary rod insertion [Unknown]
  - Femur fracture [Unknown]
  - Wrist fracture [Not Recovered/Not Resolved]
  - Closed fracture manipulation [Unknown]
  - Femur fracture [Not Recovered/Not Resolved]
  - Avulsion fracture [Unknown]
  - Osteoarthritis [Unknown]
  - Asthenia [Unknown]
  - Nausea [Unknown]
